FAERS Safety Report 25145724 (Version 2)
Quarter: 2025Q2

REPORT INFORMATION
  Report Type: Spontaneous
  Country: FR (occurrence: FR)
  Receive Date: 20250401
  Receipt Date: 20250423
  Transmission Date: 20250717
  Serious: Yes (Hospitalization)
  Sender: PFIZER
  Company Number: FR-PFIZER INC-202500068922

PATIENT
  Age: 42 Year
  Sex: Female
  Weight: 45 kg

DRUGS (17)
  1. ADCETRIS [Suspect]
     Active Substance: BRENTUXIMAB VEDOTIN
     Indication: Anaplastic large cell lymphoma T- and null-cell types
     Route: 042
     Dates: start: 20241224, end: 20241224
  2. ADCETRIS [Suspect]
     Active Substance: BRENTUXIMAB VEDOTIN
     Route: 042
     Dates: start: 20250123, end: 20250123
  3. DEXAMETHASONE [Suspect]
     Active Substance: DEXAMETHASONE
     Dosage: 10 MG ONCE A DAY
     Route: 048
  4. PANTOPRAZOLE [Concomitant]
     Active Substance: PANTOPRAZOLE
     Dosage: 40 MILLIGRAMS TWICE DAILY
     Route: 048
  5. ENOXAPARIN SODIUM [Concomitant]
     Active Substance: ENOXAPARIN SODIUM
     Dosage: 2000 IU/DAY
     Route: 058
  6. FOLIC ACID [Concomitant]
     Active Substance: FOLIC ACID
  7. DESONIDE [Concomitant]
     Active Substance: DESONIDE
     Route: 003
  8. ACETAMINOPHEN [Concomitant]
     Active Substance: ACETAMINOPHEN
     Dosage: 1 G THREE TIMES DAILY
     Route: 048
  9. OXYCONTIN [Concomitant]
     Active Substance: OXYCODONE HYDROCHLORIDE
     Dosage: 40 MG TWICE DAILY
     Route: 048
  10. OXYCODONE HYDROCHLORIDE [Concomitant]
     Active Substance: OXYCODONE HYDROCHLORIDE
     Route: 048
  11. MELATONIN [Concomitant]
     Active Substance: MELATONIN
     Dosage: 2 MG ONCE DAILY
     Route: 048
  12. BACTRIM [Concomitant]
     Active Substance: SULFAMETHOXAZOLE\TRIMETHOPRIM
     Route: 048
  13. VALACYCLOVIR HYDROCHLORIDE [Concomitant]
     Active Substance: VALACYCLOVIR HYDROCHLORIDE
     Dosage: 500 MG TWICE DAILY
     Route: 048
  14. CHOLECALCIFEROL [Concomitant]
     Active Substance: CHOLECALCIFEROL
     Dosage: 100,000 IU ONCE A WEEK
  15. IFOSFAMIDE [Concomitant]
     Active Substance: IFOSFAMIDE
     Indication: Anaplastic large cell lymphoma T- and null-cell types
     Dates: start: 20241224, end: 20241224
  16. CARBOPLATIN [Concomitant]
     Active Substance: CARBOPLATIN
     Indication: Anaplastic large cell lymphoma T- and null-cell types
     Dates: start: 20241224, end: 20241224
  17. ETOPOSIDE [Concomitant]
     Active Substance: ETOPOSIDE
     Indication: Anaplastic large cell lymphoma T- and null-cell types
     Dates: start: 20241224, end: 20241224

REACTIONS (11)
  - Escherichia bacteraemia [Recovering/Resolving]
  - Neutropenia [Recovered/Resolved]
  - Thrombocytopenia [Not Recovered/Not Resolved]
  - Oedema peripheral [Recovered/Resolved]
  - Purpura [Recovering/Resolving]
  - Weight increased [Unknown]
  - Pain in extremity [Recovered/Resolved]
  - Cancer pain [Unknown]
  - Peripheral venous disease [Unknown]
  - Pruritus [Unknown]
  - Congenital aplasia [Unknown]

NARRATIVE: CASE EVENT DATE: 20241201
